FAERS Safety Report 7283448-X (Version None)
Quarter: 2011Q1

REPORT INFORMATION
  Report Type: 
  Country: None (occurrence: None)
  Receive Date: 20110204
  Receipt Date: 20110204
  Transmission Date: 20110831
  Serious: Yes (Other)
  Sender: FDA-Public Use
  Company Number: None

PATIENT
  Age: 69 Year
  Sex: Male
  Weight: 81.6475 kg

DRUGS (2)
  1. LORCET-HD [Suspect]
  2. HYDROCODONE BITARTRATE + ACETAMINOPHEN [Suspect]
     Indication: TOOTHACHE
     Dosage: 1 3 TIMES A DAY
     Dates: start: 20110117

REACTIONS (3)
  - NAUSEA [None]
  - HYPERHIDROSIS [None]
  - SKIN DISCOLOURATION [None]
